FAERS Safety Report 6574463-X (Version None)
Quarter: 2010Q1

REPORT INFORMATION
  Report Type: 
  Country: None (occurrence: None)
  Receive Date: 20100209
  Receipt Date: 20090803
  Transmission Date: 20100710
  Serious: No
  Sender: FDA-Public Use
  Company Number: A0800107A

PATIENT
  Age: 40 Year
  Sex: Female

DRUGS (2)
  1. PAXIL [Suspect]
     Indication: ANXIETY
     Dosage: 10MG UNKNOWN
     Route: 048
     Dates: start: 20030101
  2. LEVOXYL [Concomitant]

REACTIONS (1)
  - WEIGHT INCREASED [None]
